FAERS Safety Report 7618873-8 (Version None)
Quarter: 2011Q3

REPORT INFORMATION
  Report Type: 
  Country: None (occurrence: None)
  Receive Date: 20110718
  Receipt Date: 20110714
  Transmission Date: 20111222
  Serious: Yes (Life-Threatening, Hospitalization)
  Sender: FDA-Public Use
  Company Number: GB-ABBOTT-08P-167-0493160-00

PATIENT
  Age: 6 Year
  Sex: Male
  Weight: 20 kg

DRUGS (6)
  1. HUMIRA [Suspect]
     Indication: UVEITIS
  2. TRIAMCINOLONE [Concomitant]
     Indication: ARTHRITIS
     Dosage: SINGLE-DOSE
     Route: 014
  3. HUMIRA [Suspect]
     Indication: JUVENILE ARTHRITIS
     Route: 058
     Dates: start: 20080610, end: 20081022
  4. ANAKINRA [Concomitant]
     Indication: ARTHRITIS
  5. PREDNISOLONE [Concomitant]
     Indication: ARTHRITIS
     Dosage: VARIABLE DOSE
     Route: 048
  6. METHOTREXATE [Concomitant]
     Indication: ARTHRITIS
     Route: 048

REACTIONS (3)
  - MENINGITIS TUBERCULOUS [None]
  - INTRACRANIAL PRESSURE INCREASED [None]
  - PAPILLOEDEMA [None]
